FAERS Safety Report 12304552 (Version 2)
Quarter: 2016Q2

REPORT INFORMATION
  Report Type: Spontaneous
  Country: HU (occurrence: HU)
  Receive Date: 20160426
  Receipt Date: 20160524
  Transmission Date: 20160815
  Serious: Yes (Hospitalization)
  Sender: FDA-Public Use
  Company Number: HU-UNITED THERAPEUTICS-UNT-2016-006387

PATIENT
  Sex: Female

DRUGS (1)
  1. REMODULIN [Suspect]
     Active Substance: TREPROSTINIL
     Indication: PULMONARY ARTERIAL HYPERTENSION
     Dosage: 0.024 ?G/KG, CONTINUING
     Route: 058
     Dates: start: 2015, end: 20160503

REACTIONS (10)
  - Abdominal distension [Recovered/Resolved]
  - Device issue [Unknown]
  - Infusion site pain [Recovered/Resolved]
  - Infusion site hypersensitivity [Recovered/Resolved]
  - Infusion site reaction [Unknown]
  - Infusion site oedema [Recovered/Resolved]
  - Infusion site inflammation [Recovered/Resolved]
  - Abdominal pain [Recovered/Resolved]
  - Infusion site cellulitis [Recovered/Resolved]
  - Pyrexia [Recovered/Resolved]

NARRATIVE: CASE EVENT DATE: 201601
